FAERS Safety Report 5657421-9 (Version None)
Quarter: 2008Q1

REPORT INFORMATION
  Report Type: 
  Country: None (occurrence: None)
  Receive Date: 20080219
  Receipt Date: 20071129
  Transmission Date: 20080703
  Serious: No
  Sender: FDA-Public Use
  Company Number: WAES 0711USA06416

PATIENT
  Age: 57 Year
  Sex: Female

DRUGS (3)
  1. JANUVIA [Suspect]
     Indication: DIABETES MELLITUS
     Dosage: 100 MG/DAILY/PO
     Route: 048
     Dates: start: 20071127, end: 20071129
  2. AVAPRO [Concomitant]
  3. PRAVACHOL [Concomitant]

REACTIONS (3)
  - FEELING ABNORMAL [None]
  - PHARYNGEAL OEDEMA [None]
  - UPPER RESPIRATORY TRACT INFECTION [None]
